FAERS Safety Report 10442447 (Version 1)
Quarter: 2014Q3

REPORT INFORMATION
  Report Type: Spontaneous
  Country: US (occurrence: US)
  Receive Date: 20140909
  Receipt Date: 20140909
  Transmission Date: 20150326
  Serious: Yes (Other)
  Sender: FDA-Public Use
  Company Number: US-TEVA-506458USA

PATIENT
  Age: 26 Year
  Sex: Male

DRUGS (12)
  1. VITAMIN D [Concomitant]
     Active Substance: CHOLECALCIFEROL
     Route: 065
  2. PREDNISONE. [Concomitant]
     Active Substance: PREDNISONE
     Dosage: 60MG DAILY
     Route: 048
  3. AMLODIPINE [Concomitant]
     Active Substance: AMLODIPINE BESYLATE
     Dosage: 5MG DAILY
     Route: 065
  4. LOSARTAN [Concomitant]
     Active Substance: LOSARTAN
     Dosage: 50MG DAILY
     Route: 065
  5. CALCIUM [Concomitant]
     Active Substance: CALCIUM
     Route: 065
  6. PREDNISONE. [Concomitant]
     Active Substance: PREDNISONE
     Route: 048
  7. METHYLPREDNISOLONE [Suspect]
     Active Substance: METHYLPREDNISOLONE
     Dosage: ONE DOSE OF 1G
     Route: 042
  8. PREDNISONE. [Concomitant]
     Active Substance: PREDNISONE
     Dosage: 17.5MG DAILY
     Route: 048
  9. LOSARTAN [Concomitant]
     Active Substance: LOSARTAN
     Dosage: 100MG DAILY
     Route: 065
  10. HYDROXYCHLOROQUINE [Concomitant]
     Active Substance: HYDROXYCHLOROQUINE
     Dosage: 400MG/DAY
     Route: 065
  11. ESOMEPRAZOLE [Concomitant]
     Active Substance: ESOMEPRAZOLE
     Dosage: 40MG DAILY
     Route: 065
  12. ALENDRONIC ACID [Concomitant]
     Active Substance: ALENDRONIC ACID
     Dosage: 70MG WEEKLY
     Route: 065

REACTIONS (4)
  - Thrombosis [Recovering/Resolving]
  - Ischaemia [Recovering/Resolving]
  - Acne [Recovered/Resolved]
  - Myopathy [Recovered/Resolved]
